FAERS Safety Report 9908517 (Version 1)
Quarter: 2014Q1

REPORT INFORMATION
  Report Type: Spontaneous
  Country: US (occurrence: US)
  Receive Date: 20140219
  Receipt Date: 20140219
  Transmission Date: 20141002
  Serious: No
  Sender: FDA-Public Use
  Company Number: US-009507513-1402USA008723

PATIENT
  Sex: Female

DRUGS (1)
  1. PEGINTRON [Suspect]
     Dosage: 120 MICROGRAM, QW, REDIPEN.
     Route: 058
     Dates: start: 20131202

REACTIONS (3)
  - Drug dose omission [Unknown]
  - Product quality issue [Unknown]
  - No adverse event [Unknown]
